FAERS Safety Report 5099216-3 (Version None)
Quarter: 2006Q3

REPORT INFORMATION
  Report Type: 
  Country: None (occurrence: None)
  Receive Date: 20060731
  Receipt Date: 20051018
  Transmission Date: 20061208
  Serious: Yes (Other)
  Sender: FDA-Public Use
  Company Number: 218741

PATIENT
  Age: 74 Year
  Sex: Female

DRUGS (3)
  1. HERCEPTIN [Suspect]
     Indication: BREAST CANCER
     Dosage: 120 MG, 1/WEEK
     Dates: start: 20050720
  2. ADRIAMYCIN PFS [Suspect]
     Indication: BREAST CANCER
     Dosage: 95 MG, Q3W
     Dates: start: 20050118, end: 20050301
  3. CYCLOPHOSPHAMIDE [Suspect]
     Indication: BREAST CANCER
     Dosage: 950 MG, Q3W
     Dates: start: 20050118, end: 20050301

REACTIONS (1)
  - EJECTION FRACTION DECREASED [None]
